FAERS Safety Report 23952273 (Version 1)
Quarter: 2024Q2

REPORT INFORMATION
  Report Type: Spontaneous
  Country: CN (occurrence: CN)
  Receive Date: 20240607
  Receipt Date: 20240607
  Transmission Date: 20240715
  Serious: Yes (Other)
  Sender: FDA-Public Use
  Company Number: CN-BAYER-2024A083266

PATIENT
  Age: 49 Year
  Sex: Male
  Weight: 95 kg

DRUGS (1)
  1. ULTRAVIST [Suspect]
     Active Substance: IOPROMIDE
     Indication: Computerised tomogram heart
     Dosage: 60 ML, ONCE
     Route: 042
     Dates: start: 20240531, end: 20240531

REACTIONS (9)
  - Flushing [Recovering/Resolving]
  - Pruritus [Recovering/Resolving]
  - Oropharyngeal discomfort [Recovering/Resolving]
  - Urticaria [Recovering/Resolving]
  - Chest discomfort [Recovering/Resolving]
  - Dyspnoea [Recovering/Resolving]
  - Blood pressure diastolic increased [Recovered/Resolved]
  - Respiratory rate increased [None]
  - Tachypnoea [Recovering/Resolving]

NARRATIVE: CASE EVENT DATE: 20240531
